FAERS Safety Report 13595173 (Version 1)
Quarter: 2017Q2

REPORT INFORMATION
  Report Type: Report from Study
  Country: CO (occurrence: CO)
  Receive Date: 20170531
  Receipt Date: 20170531
  Transmission Date: 20170830
  Serious: Yes (Other)
  Sender: FDA-Public Use
  Company Number: CO-ROCHE-1940314

PATIENT
  Age: 42 Year
  Sex: Male

DRUGS (4)
  1. RITUXIMAB [Suspect]
     Active Substance: RITUXIMAB
     Indication: NON-HODGKIN^S LYMPHOMA
     Dosage: SECOND LINE TREATMENT
     Route: 042
     Dates: start: 201603, end: 201606
  2. CYCLOPHOSPHAMIDE. [Suspect]
     Active Substance: CYCLOPHOSPHAMIDE
     Indication: NON-HODGKIN^S LYMPHOMA
     Dosage: SECOND LINE TREATMENT
     Route: 065
     Dates: start: 201603, end: 201606
  3. RITUXIMAB [Suspect]
     Active Substance: RITUXIMAB
     Dosage: MAINTENANCE TREATMENT 4 CYCLES
     Route: 042
     Dates: start: 201607, end: 201610
  4. FLUDARABINE [Suspect]
     Active Substance: FLUDARABINE PHOSPHATE
     Indication: NON-HODGKIN^S LYMPHOMA
     Route: 065
     Dates: start: 201603, end: 201606

REACTIONS (3)
  - Myelodysplastic syndrome [Unknown]
  - Leukopenia [Unknown]
  - Hypogammaglobulinaemia [Unknown]
